FAERS Safety Report 4989518-0 (Version None)
Quarter: 2006Q2

REPORT INFORMATION
  Report Type: 
  Country: None (occurrence: None)
  Receive Date: 20060502
  Receipt Date: 20051005
  Transmission Date: 20061013
  Serious: Yes (Hospitalization)
  Sender: FDA-Public Use
  Company Number: US-MERCK-0510USA04794

PATIENT
  Age: 75 Year
  Sex: Male
  Weight: 100 kg

DRUGS (10)
  1. VIOXX [Suspect]
     Indication: ARTHRALGIA
     Route: 048
     Dates: start: 20030805, end: 20030811
  2. VIOXX [Suspect]
     Route: 048
     Dates: start: 20030821, end: 20040930
  3. VIOXX [Suspect]
     Indication: OSTEOARTHRITIS
     Route: 048
     Dates: start: 20030805, end: 20030811
  4. VIOXX [Suspect]
     Route: 048
     Dates: start: 20030821, end: 20040930
  5. HYZAAR [Concomitant]
     Route: 048
  6. ADALAT [Concomitant]
     Route: 065
  7. CENTRUM SILVER [Concomitant]
     Route: 065
  8. SELENIUM (UNSPECIFIED) [Concomitant]
     Route: 065
  9. ASPIRIN [Concomitant]
     Route: 065
  10. ATENOLOL [Concomitant]
     Route: 065

REACTIONS (11)
  - ARTHROPATHY [None]
  - CHRONIC OBSTRUCTIVE PULMONARY DISEASE [None]
  - DIVERTICULUM [None]
  - GOUT [None]
  - HAEMORRHOIDS [None]
  - HYPOXIA [None]
  - INTERVERTEBRAL DISC DISORDER [None]
  - PULMONARY EMBOLISM [None]
  - RENAL CELL CARCINOMA STAGE UNSPECIFIED [None]
  - STOMACH DISCOMFORT [None]
  - VENOUS INSUFFICIENCY [None]
